FAERS Safety Report 11119055 (Version 1)
Quarter: 2015Q2

REPORT INFORMATION
  Report Type: Spontaneous
  Country: US (occurrence: None)
  Receive Date: 20150515
  Receipt Date: 20150515
  Transmission Date: 20150821
  Serious: Yes (Other)
  Sender: FDA-Public Use
  Company Number: None

PATIENT
  Age: 51 Year
  Sex: Female
  Weight: 70.31 kg

DRUGS (3)
  1. ALBUTEROL SULFATE. [Suspect]
     Active Substance: ALBUTEROL SULFATE
     Indication: ASTHMA
     Dosage: 1 VIAL DISPENSED VIA NEBULIZER; 4-6 HOURS
     Route: 055
     Dates: start: 20150510, end: 20150513
  2. ALBUTEROL SULFATE. [Suspect]
     Active Substance: ALBUTEROL SULFATE
     Indication: SEASONAL ALLERGY
     Dosage: 1 VIAL DISPENSED VIA NEBULIZER; 4-6 HOURS
     Route: 055
     Dates: start: 20150510, end: 20150513
  3. CYMBALTA [Concomitant]
     Active Substance: DULOXETINE HYDROCHLORIDE

REACTIONS (2)
  - Bronchospasm [None]
  - Urticaria [None]

NARRATIVE: CASE EVENT DATE: 20150512
